FAERS Safety Report 23023914 (Version 5)
Quarter: 2023Q4

REPORT INFORMATION
  Report Type: Report from Study
  Country: US (occurrence: US)
  Receive Date: 20231003
  Receipt Date: 20231228
  Transmission Date: 20240109
  Serious: Yes (Hospitalization, Other)
  Sender: FDA-Public Use
  Company Number: US-ABBVIE-5431878

PATIENT
  Sex: Male

DRUGS (4)
  1. VENCLEXTA [Suspect]
     Active Substance: VENETOCLAX
     Indication: Acute myeloid leukaemia
     Dosage: TAKE 1 TABLET BY MOUTH ALONG WITH TWO 10MG TABLETS DAILY WITH FOOD AND WATER FOR 2 WEEKS ON THEN ...
     Route: 048
  2. VENCLEXTA [Suspect]
     Active Substance: VENETOCLAX
     Indication: Acute myeloid leukaemia
     Dosage: STRENGTH: 10MG (14/BOX)?TAKE 2 TABLETS BY MOUTH ALONG WITH ONE 50MG TABLET DAILY WITH FOOD AND WA...
     Route: 048
  3. VENCLEXTA [Suspect]
     Active Substance: VENETOCLAX
     Indication: Acute myeloid leukaemia
     Dosage: STRENGTH: 10MG (14/BOX)?TAKE 2 TABLETS BY MOUTH ALONG WITH ONE 50MG TABLET DAILY WITH FOOD AND WA...
     Route: 048
     Dates: start: 20231109
  4. POSACONAZOLE [Suspect]
     Active Substance: POSACONAZOLE
     Indication: Product used for unknown indication
     Route: 065

REACTIONS (9)
  - Aspiration bone marrow [Not Recovered/Not Resolved]
  - Transfusion [Not Recovered/Not Resolved]
  - Back pain [Unknown]
  - Haemoglobin decreased [Not Recovered/Not Resolved]
  - Off label use [Not Recovered/Not Resolved]
  - Platelet count decreased [Not Recovered/Not Resolved]
  - Cardiac disorder [Not Recovered/Not Resolved]
  - Unevaluable event [Not Recovered/Not Resolved]
  - Drug interaction [Unknown]

NARRATIVE: CASE EVENT DATE: 20230101
